FAERS Safety Report 5203402-9 (Version None)
Quarter: 2007Q1

REPORT INFORMATION
  Report Type: 
  Country: None (occurrence: None)
  Receive Date: 20070105
  Receipt Date: 20061220
  Transmission Date: 20070707
  Serious: Yes (Other)
  Sender: FDA-Public Use
  Company Number: CIP06002871

PATIENT
  Age: 40 Year
  Sex: Female
  Weight: 70 kg

DRUGS (5)
  1. ACTONEL [Suspect]
     Indication: OSTEOPOROSIS POSTMENOPAUSAL
     Dosage: 35 MG ONCE WEEKLY, ORAL
     Route: 048
     Dates: start: 20060601
  2. CALCIORAL D3(CALCIUM CARBONATE, COLECALCIFEROL) [Suspect]
     Indication: OSTEOPOROSIS POSTMENOPAUSAL
     Dosage: ORAL
     Route: 048
     Dates: start: 20060601
  3. LETROZOLE [Concomitant]
  4. GOSERELIN ACETATE (GOSERELIN ACETATE) [Concomitant]
  5. T4 (LEVOTHYROXINE SODIUM) [Concomitant]

REACTIONS (1)
  - PHOTOSENSITIVITY REACTION [None]
